FAERS Safety Report 15860446 (Version 2)
Quarter: 2019Q1

REPORT INFORMATION
  Report Type: Spontaneous
  Country: US (occurrence: US)
  Receive Date: 20190123
  Receipt Date: 20190206
  Transmission Date: 20190417
  Serious: Yes (Hospitalization, Other)
  Sender: FDA-Public Use
  Company Number: US-CELGENEUS-USA-20190105711

PATIENT
  Age: 60 Year
  Sex: Female
  Weight: 76.2 kg

DRUGS (3)
  1. DEXAMETHASONE. [Suspect]
     Active Substance: DEXAMETHASONE
     Indication: PLASMA CELL MYELOMA
     Dosage: 40 MILLIGRAM
     Route: 065
     Dates: start: 20180605, end: 20190108
  2. REVLIMID [Suspect]
     Active Substance: LENALIDOMIDE
     Indication: PLASMA CELL MYELOMA
     Dosage: 250 MILLIGRAM
     Route: 048
     Dates: start: 20180605, end: 20190110
  3. CARFILZOMIB [Suspect]
     Active Substance: CARFILZOMIB
     Indication: PLASMA CELL MYELOMA
     Dosage: 266.4 MILLIGRAM
     Route: 065
     Dates: start: 20180605, end: 20190108

REACTIONS (9)
  - Anaemia [Recovered/Resolved with Sequelae]
  - Blood bilirubin increased [Recovered/Resolved with Sequelae]
  - Lung infection [Recovered/Resolved with Sequelae]
  - Acute kidney injury [Recovered/Resolved with Sequelae]
  - Pulmonary embolism [Recovered/Resolved with Sequelae]
  - Upper respiratory tract infection [Recovered/Resolved with Sequelae]
  - Dyspnoea [Recovered/Resolved with Sequelae]
  - Platelet count decreased [Recovered/Resolved with Sequelae]
  - Blood creatinine increased [Recovered/Resolved with Sequelae]

NARRATIVE: CASE EVENT DATE: 20190111
